FAERS Safety Report 15560405 (Version 1)
Quarter: 2018Q4

REPORT INFORMATION
  Report Type: Spontaneous
  Country: IN (occurrence: IN)
  Receive Date: 20181029
  Receipt Date: 20181029
  Transmission Date: 20190205
  Serious: Yes (Hospitalization)
  Sender: FDA-Public Use
  Company Number: IN-MYLANLABS-2018M1078528

PATIENT
  Age: 50 Year
  Sex: Male

DRUGS (8)
  1. COLISTIN [Suspect]
     Active Substance: COLISTIN
     Indication: GASTRIC ULCER PERFORATION
     Route: 042
  2. AMIKACIN. [Suspect]
     Active Substance: AMIKACIN
     Indication: GASTRIC ULCER PERFORATION
     Route: 042
  3. LEVOFLOXACIN. [Suspect]
     Active Substance: LEVOFLOXACIN
     Indication: GASTRIC ULCER PERFORATION
     Route: 042
  4. FLUCONAZOLE. [Suspect]
     Active Substance: FLUCONAZOLE
     Indication: EVIDENCE BASED TREATMENT
  5. VANCOMYCIN [Suspect]
     Active Substance: VANCOMYCIN
     Indication: GASTRIC ULCER PERFORATION
     Dosage: 50 MG, Q8H
     Route: 042
  6. METRONIDAZOLE. [Suspect]
     Active Substance: METRONIDAZOLE
     Indication: GASTRIC ULCER PERFORATION
     Dosage: 400 MG, Q8H
     Route: 042
  7. FLUCONAZOLE. [Suspect]
     Active Substance: FLUCONAZOLE
     Indication: GASTRIC ULCER PERFORATION
     Route: 042
  8. CEFTRIAXONE. [Suspect]
     Active Substance: CEFTRIAXONE
     Indication: GASTRIC ULCER PERFORATION
     Route: 042

REACTIONS (1)
  - Candida infection [Recovering/Resolving]
